FAERS Safety Report 7670162-1 (Version None)
Quarter: 2011Q3

REPORT INFORMATION
  Report Type: 
  Country: None (occurrence: None)
  Receive Date: 20110808
  Receipt Date: 20110728
  Transmission Date: 20111222
  Serious: Yes (Hospitalization)
  Sender: FDA-Public Use
  Company Number: US-ASTRAZENECA-2011SE37078

PATIENT
  Age: 60 Year
  Sex: Female

DRUGS (3)
  1. ADVAIR DISKUS 100/50 [Concomitant]
  2. PULMICORT [Suspect]
     Indication: ASTHMA
     Route: 055
     Dates: start: 20070101, end: 20110401
  3. PULMICORT [Suspect]
     Route: 055
     Dates: start: 20110607

REACTIONS (3)
  - DRUG PRESCRIBING ERROR [None]
  - DYSPNOEA [None]
  - DRUG DOSE OMISSION [None]
